FAERS Safety Report 7383003-7 (Version None)
Quarter: 2011Q1

REPORT INFORMATION
  Report Type: 
  Country: None (occurrence: None)
  Receive Date: 20110330
  Receipt Date: 20101011
  Transmission Date: 20110831
  Serious: Yes (Hospitalization, Other)
  Sender: FDA-Public Use
  Company Number: US-BAYER-201018627NA

PATIENT
  Sex: Female
  Weight: 44.444 kg

DRUGS (4)
  1. IMITREX [Concomitant]
  2. AMITRIPTYLINE [Concomitant]
     Indication: MOOD ALTERED
  3. YASMIN [Suspect]
     Indication: PREMENSTRUAL SYNDROME
     Dosage: AS USED DOSE: UNK
     Route: 048
     Dates: start: 20010101, end: 20020101
  4. AMITRIPTYLINE [Concomitant]
     Indication: HEADACHE

REACTIONS (4)
  - CHOLECYSTECTOMY [None]
  - PREMATURE LABOUR [None]
  - CHOLELITHIASIS [None]
  - CHOLECYSTITIS CHRONIC [None]
